FAERS Safety Report 9777520 (Version 3)
Quarter: 2014Q2

REPORT INFORMATION
  Report Type: Spontaneous
  Country: JP (occurrence: JP)
  Receive Date: 20131222
  Receipt Date: 20140404
  Transmission Date: 20141212
  Serious: Yes (Hospitalization)
  Sender: FDA-Public Use
  Company Number: PHHY2013JP149590

PATIENT
  Age: 74 Year
  Sex: Male

DRUGS (2)
  1. EXELON PATCH [Suspect]
     Indication: DEMENTIA
     Dosage: 18 MG, DAILY
     Route: 062
     Dates: start: 20131204, end: 20131216
  2. MAGLAX [Concomitant]
     Dosage: 2 G, UNK
     Route: 048
     Dates: start: 20131204, end: 20131216

REACTIONS (1)
  - Intestinal obstruction [Recovered/Resolved]
